FAERS Safety Report 7738520-4 (Version None)
Quarter: 2011Q3

REPORT INFORMATION
  Report Type: 
  Country: None (occurrence: None)
  Receive Date: 20110908
  Receipt Date: 20110826
  Transmission Date: 20111222
  Serious: Yes (Hospitalization)
  Sender: FDA-Public Use
  Company Number: US-ELI_LILLY_AND_COMPANY-US201106000176

PATIENT
  Sex: Male

DRUGS (4)
  1. XANAX [Concomitant]
     Dosage: UNK, UNKNOWN
     Route: 065
  2. ZYPREXA RELPREVV [Suspect]
     Indication: SCHIZOPHRENIA, PARANOID TYPE
     Dosage: UNK, UNKNOWN
     Route: 030
     Dates: start: 20110501
  3. ZYPREXA [Suspect]
     Dosage: 20 MG, UNKNOWN
     Route: 048
  4. AMBIEN [Concomitant]
     Dosage: UNK, UNKNOWN
     Route: 065

REACTIONS (4)
  - DRUG EFFECT DECREASED [None]
  - PARANOIA [None]
  - HALLUCINATION, AUDITORY [None]
  - ANXIETY [None]
